FAERS Safety Report 9708493 (Version 1)
Quarter: 2013Q4

REPORT INFORMATION
  Report Type: Report from Study
  Country: GB (occurrence: GB)
  Receive Date: 20131125
  Receipt Date: 20131125
  Transmission Date: 20140711
  Serious: Yes (Hospitalization)
  Sender: FDA-Public Use
  Company Number: GB-AMGEN-GBRCT2013082474

PATIENT
  Age: 40 Year
  Sex: Male
  Weight: 176 kg

DRUGS (16)
  1. ETANERCEPT [Suspect]
     Indication: PRODUCT USED FOR UNKNOWN INDICATION
     Dosage: 50 MG, QWK
     Route: 065
     Dates: end: 20130104
  2. LANSOPRAZOLE [Concomitant]
     Dosage: UNK
     Dates: start: 20100430
  3. NABUMETONE [Concomitant]
     Dosage: UNK
     Dates: start: 20100430
  4. OXYNORM [Concomitant]
     Dosage: UNK
     Dates: start: 20100430
  5. PARACETAMOL [Concomitant]
     Dosage: UNK
     Dates: start: 20100430
  6. VENLAFAXINE HYDROCHLORIDE [Concomitant]
     Dosage: UNK
     Dates: start: 20100430
  7. CHAMPIX [Concomitant]
     Dosage: UNK
     Dates: start: 20100430
  8. METHOTREXATE [Concomitant]
     Dosage: UNK
     Dates: start: 20110331, end: 20130501
  9. METHOTREXATE [Concomitant]
     Dosage: UNK
     Dates: start: 20130730
  10. FOLIC ACID [Concomitant]
     Dosage: UNK
     Dates: start: 20110404, end: 20130501
  11. FOLIC ACID [Concomitant]
     Dosage: UNK
     Dates: start: 20130802
  12. NEFOPAM [Concomitant]
     Dosage: UNK
     Dates: start: 20110412
  13. FERROUS SULPHATE                   /00023503/ [Concomitant]
     Dosage: UNK
     Dates: start: 20110415
  14. DOCUSATE SODIUM [Concomitant]
     Dosage: UNK
     Dates: start: 20120115
  15. FLUCLOXACILLIN [Concomitant]
     Dosage: UNK
     Dates: start: 20130725, end: 20130803
  16. VITAMIN D                          /00107901/ [Concomitant]
     Dosage: UNK
     Dates: start: 20130915

REACTIONS (1)
  - Psoriasis [Recovered/Resolved]
